FAERS Safety Report 13165012 (Version 1)
Quarter: 2017Q1

REPORT INFORMATION
  Report Type: Spontaneous
  Country: US (occurrence: US)
  Receive Date: 20170130
  Receipt Date: 20170130
  Transmission Date: 20170428
  Serious: No
  Sender: FDA-Public Use
  Company Number: US-ELI_LILLY_AND_COMPANY-US201701000444

PATIENT
  Age: 69 Year
  Sex: Female

DRUGS (5)
  1. HUMULIN R [Suspect]
     Active Substance: INSULIN HUMAN
     Indication: TYPE 2 DIABETES MELLITUS
     Dosage: 20 U, BID
     Route: 065
     Dates: start: 2016, end: 201611
  2. HUMULIN R U-500 [Suspect]
     Active Substance: INSULIN HUMAN
     Indication: TYPE 2 DIABETES MELLITUS
     Dosage: 100 U, BID
     Route: 065
     Dates: start: 201611
  3. HUMULIN R [Suspect]
     Active Substance: INSULIN HUMAN
     Dosage: 20 U, BID
     Route: 065
     Dates: end: 20170116
  4. METFORMIN [Concomitant]
     Active Substance: METFORMIN HYDROCHLORIDE
  5. VICTOZA [Concomitant]
     Active Substance: LIRAGLUTIDE

REACTIONS (6)
  - Glycosylated haemoglobin increased [Unknown]
  - Tremor [Recovering/Resolving]
  - Incorrect drug administration duration [Unknown]
  - Blood glucose increased [Unknown]
  - Blood glucose decreased [Recovering/Resolving]
  - Drug dose omission [Unknown]

NARRATIVE: CASE EVENT DATE: 20161220
